FAERS Safety Report 9452456 (Version 1)
Quarter: 2013Q3

REPORT INFORMATION
  Report Type: Spontaneous
  Country: US (occurrence: None)
  Receive Date: 20130808
  Receipt Date: 20130808
  Transmission Date: 20140515
  Serious: Yes (Other)
  Sender: FDA-Public Use
  Company Number: None

PATIENT
  Age: 41 Year
  Sex: Female
  Weight: 63.5 kg

DRUGS (2)
  1. OXYCODONE [Suspect]
     Indication: TOOTH ABSCESS
     Dosage: 1, FOUR TIMEDS DAILY , TAKEN BY MOUTH
     Route: 048
     Dates: start: 20130803, end: 20130806
  2. OXYCODONE [Suspect]
     Indication: PAIN
     Dosage: 1, FOUR TIMEDS DAILY , TAKEN BY MOUTH
     Route: 048
     Dates: start: 20130803, end: 20130806

REACTIONS (2)
  - Rash [None]
  - Pain [None]
